FAERS Safety Report 7779678-0 (Version None)
Quarter: 2011Q3

REPORT INFORMATION
  Report Type: 
  Country: None (occurrence: None)
  Receive Date: 20110927
  Receipt Date: 20110329
  Transmission Date: 20111222
  Serious: Yes (Hospitalization, Other)
  Sender: FDA-Public Use
  Company Number: US-BAYER-201037287NA

PATIENT
  Sex: Male
  Weight: 79 kg

DRUGS (29)
  1. OPTIMARK [Suspect]
     Indication: PRODUCT USED FOR UNKNOWN INDICATION
  2. NORVASC [Concomitant]
  3. EPO [Concomitant]
  4. CORDARONE [Concomitant]
  5. ALTERNAGEL [Concomitant]
  6. TOPROL-XL [Concomitant]
     Dosage: 100 MG, BID
     Dates: start: 20040101
  7. CLONIDINE [Concomitant]
  8. LISINOPRIL [Concomitant]
  9. FERROUS SULFATE TAB [Concomitant]
  10. HYDRALAZINE HCL [Concomitant]
  11. RENVELA [Concomitant]
  12. COUMADIN [Concomitant]
  13. BENICAR [Concomitant]
  14. ZOMETA [Concomitant]
  15. VASOTEC [Concomitant]
  16. TIZANIDINE HCL [Concomitant]
  17. ACCUPRIL [Concomitant]
  18. PEPCID [Concomitant]
  19. MAGNEVIST [Suspect]
     Indication: NUCLEAR MAGNETIC RESONANCE IMAGING
     Dosage: UNK
     Dates: start: 20040827, end: 20040827
  20. RENAGEL [Concomitant]
  21. DIGOXIN [Concomitant]
  22. METOPROLOL TARTRATE [Concomitant]
  23. ATACAND [Concomitant]
  24. PHOSLO [Concomitant]
  25. ARANESP [Concomitant]
  26. PACERONE [Concomitant]
  27. ZEMPLAR [Concomitant]
  28. MAGNEVIST [Suspect]
     Dosage: 15 ML, UNK
     Dates: start: 20070104, end: 20070104
  29. SENSIPAR [Concomitant]

REACTIONS (17)
  - PEAU D'ORANGE [None]
  - SKIN DISCOLOURATION [None]
  - JOINT STIFFNESS [None]
  - ANXIETY [None]
  - STRESS [None]
  - DEPRESSION [None]
  - PAIN [None]
  - MOBILITY DECREASED [None]
  - ARTHRALGIA [None]
  - RASH PAPULAR [None]
  - RESTLESSNESS [None]
  - GENERAL PHYSICAL HEALTH DETERIORATION [None]
  - INSOMNIA [None]
  - SKIN TIGHTNESS [None]
  - MUSCULOSKELETAL STIFFNESS [None]
  - SKIN HYPERTROPHY [None]
  - NEPHROGENIC SYSTEMIC FIBROSIS [None]
